FAERS Safety Report 8998342 (Version 2)
Quarter: 2013Q1

REPORT INFORMATION
  Report Type: Report from Study
  Country: US (occurrence: US)
  Receive Date: 20130105
  Receipt Date: 20130312
  Transmission Date: 20140127
  Serious: Yes (Other)
  Sender: FDA-Public Use
  Company Number: US-JNJFOC-20130101905

PATIENT
  Age: 58 Year
  Sex: Male

DRUGS (2)
  1. STELARA [Suspect]
     Indication: PSORIASIS
     Route: 058
     Dates: start: 201105
  2. STELARA [Suspect]
     Indication: PSORIASIS
     Route: 058
     Dates: start: 20130207

REACTIONS (1)
  - Prostate cancer [Recovered/Resolved]
